FAERS Safety Report 12778958 (Version 1)
Quarter: 2016Q3

REPORT INFORMATION
  Report Type: Spontaneous
  Country: US (occurrence: US)
  Receive Date: 20160922
  Receipt Date: 20160922
  Transmission Date: 20161109
  Serious: Yes (Hospitalization)
  Sender: FDA-Public Use
  Company Number: None

PATIENT
  Age: 3 Year
  Sex: Female
  Weight: 12.6 kg

DRUGS (3)
  1. MERCAPTOPURINE. [Suspect]
     Active Substance: MERCAPTOPURINE
     Dates: end: 20160919
  2. VINCRISTINE SULFATE. [Suspect]
     Active Substance: VINCRISTINE SULFATE
     Dates: end: 20160913
  3. METHOTREXATE. [Suspect]
     Active Substance: METHOTREXATE
     Dates: end: 20160913

REACTIONS (8)
  - Lip pain [None]
  - Discomfort [None]
  - Feeling hot [None]
  - Hypophagia [None]
  - Fluid intake reduced [None]
  - Oral pain [None]
  - Oral mucosal blistering [None]
  - Pyrexia [None]

NARRATIVE: CASE EVENT DATE: 20160919
